FAERS Safety Report 6900537-7 (Version None)
Quarter: 2010Q3

REPORT INFORMATION
  Report Type: 
  Country: None (occurrence: None)
  Receive Date: 20100730
  Receipt Date: 20100727
  Transmission Date: 20110219
  Serious: Yes (Hospitalization, Other)
  Sender: FDA-Public Use
  Company Number: 015182

PATIENT
  Sex: Female
  Weight: 92.2 kg

DRUGS (20)
  1. CERTOLIZUMAB PEGOL (CERTOLIZUMAB PEGOL) [Suspect]
     Indication: RHEUMATOID ARTHRITIS
     Dosage: SEE IMAGE
     Route: 058
     Dates: start: 20050915, end: 20081120
  2. CERTOLIZUMAB PEGOL (CERTOLIZUMAB PEGOL) [Suspect]
     Indication: RHEUMATOID ARTHRITIS
     Dosage: SEE IMAGE
     Route: 058
     Dates: start: 20081204
  3. METHOTREXATE [Concomitant]
  4. OXYCONTIN [Concomitant]
  5. FOLIC ACID [Concomitant]
  6. MELOXICAM [Concomitant]
  7. SOTALOL HCL [Concomitant]
  8. WARFARIN SODIUM [Concomitant]
  9. ACETAMINOPHEN [Concomitant]
  10. PROMETHAZINE [Concomitant]
  11. INGRAN /01044801/ [Concomitant]
  12. CODALGIN /00116401/ [Concomitant]
  13. MAXOLON [Concomitant]
  14. DIAZEPAM [Concomitant]
  15. LIPITOR [Concomitant]
  16. DOXEPIN HCL [Concomitant]
  17. MOGADON [Concomitant]
  18. METFORMIN HCL [Concomitant]
  19. DIAMICRON MR [Concomitant]
  20. FUROSEMIDE [Concomitant]

REACTIONS (7)
  - ACUTE PULMONARY OEDEMA [None]
  - ATRIAL FIBRILLATION [None]
  - CONSTIPATION [None]
  - HYPERHIDROSIS [None]
  - INTERNATIONAL NORMALISED RATIO DECREASED [None]
  - RESPIRATORY ACIDOSIS [None]
  - RESPIRATORY DISTRESS [None]
